FAERS Safety Report 4824918-0 (Version None)
Quarter: 2005Q4

REPORT INFORMATION
  Report Type: 
  Country: None (occurrence: None)
  Receive Date: 20051014
  Receipt Date: 20050628
  Transmission Date: 20060501
  Serious: No
  Sender: FDA-Public Use
  Company Number: 2005SP001656

PATIENT
  Age: 48 Year
  Sex: Male
  Weight: 122.4712 kg

DRUGS (7)
  1. LUNESTA [Suspect]
     Indication: INSOMNIA
     Dosage: 3 + 6 MG; HS; ORAL
     Route: 048
     Dates: start: 20050601, end: 20050601
  2. LUNESTA [Suspect]
     Indication: INSOMNIA
     Dosage: 3 + 6 MG; HS; ORAL
     Route: 048
     Dates: start: 20050601, end: 20050628
  3. ZOLOFT [Concomitant]
  4. XANAX [Concomitant]
  5. SOMA [Concomitant]
  6. INDOCIN [Concomitant]
  7. KLONOPIN [Concomitant]

REACTIONS (2)
  - DRUG INEFFECTIVE [None]
  - INSOMNIA [None]
